FAERS Safety Report 8298853-2 (Version None)
Quarter: 2012Q2

REPORT INFORMATION
  Report Type: 
  Country: None (occurrence: None)
  Receive Date: 20120419
  Receipt Date: 20120404
  Transmission Date: 20120825
  Serious: Yes (Other)
  Sender: FDA-Public Use
  Company Number: US-WATSON-2012-06090

PATIENT
  Sex: Male
  Weight: 108 kg

DRUGS (3)
  1. ALBUTEROL SULFATE [Suspect]
     Indication: OXYGEN SATURATION DECREASED
     Dosage: UNKNOWN
     Route: 055
  2. XOPENEX HFA [Suspect]
     Indication: DYSPNOEA
     Dosage: PRN
     Route: 055
  3. ATROPINE [Suspect]
     Indication: OXYGEN SATURATION DECREASED
     Dosage: UNK
     Route: 055

REACTIONS (2)
  - ADVERSE DRUG REACTION [None]
  - TACHYCARDIA [None]
